FAERS Safety Report 6999342-5 (Version None)
Quarter: 2010Q3

REPORT INFORMATION
  Report Type: 
  Country: None (occurrence: None)
  Receive Date: 20100920
  Receipt Date: 20090721
  Transmission Date: 20110219
  Serious: Yes (Other)
  Sender: FDA-Public Use
  Company Number: US-ASTRAZENECA-2007UW05087

PATIENT
  Age: 16419 Day
  Sex: Female
  Weight: 117 kg

DRUGS (6)
  1. SEROQUEL [Suspect]
     Route: 048
     Dates: start: 20040219
  2. HYDROCODONE BITARTRATE AND ACETAMINOPHEN [Concomitant]
     Dosage: 7.5/500
     Dates: start: 20040225
  3. METHOCARBAMOL [Concomitant]
     Dates: start: 20040225
  4. CYCLOBENZAPRINE [Concomitant]
     Dates: start: 20040310
  5. TIZANIDINE HCL [Concomitant]
     Dates: start: 20040316
  6. PROMETHAZINE [Concomitant]
     Dates: start: 20040318

REACTIONS (3)
  - DIABETES MELLITUS [None]
  - KETOACIDOSIS [None]
  - PANCREATITIS [None]
